FAERS Safety Report 5727718-2 (Version None)
Quarter: 2008Q2

REPORT INFORMATION
  Report Type: 
  Country: None (occurrence: None)
  Receive Date: 20080505
  Receipt Date: 20080425
  Transmission Date: 20081010
  Serious: Yes (Life-Threatening, Hospitalization, Other)
  Sender: FDA-Public Use
  Company Number: US-ABBOTT-08P-163-0449106-00

PATIENT
  Sex: Female
  Weight: 59.928 kg

DRUGS (10)
  1. COATED PDS [Suspect]
     Indication: HIGH DENSITY LIPOPROTEIN DECREASED
     Route: 048
     Dates: start: 20080423
  2. COATED PDS [Suspect]
     Route: 048
     Dates: start: 20060101, end: 20060101
  3. ACETYLSALICYLIC ACID SRT [Concomitant]
     Indication: ANTICOAGULANT THERAPY
     Route: 048
     Dates: start: 20070101
  4. ATORVASTATIN CALCIUM [Concomitant]
     Indication: BLOOD CHOLESTEROL
     Route: 048
  5. ATORVASTATIN CALCIUM [Concomitant]
     Route: 048
     Dates: start: 20070101
  6. TRIAMTERENE [Concomitant]
     Indication: HYPERTENSION
     Dosage: 75/50MG TABLET ONCE DAILY
     Route: 048
     Dates: start: 20070101
  7. METOPROLOL TARTRATE [Concomitant]
     Indication: HYPERTENSION
     Dosage: 50MG TWICE DAILY
     Route: 048
  8. CLOPIDOGREL [Concomitant]
     Indication: ANTICOAGULANT THERAPY
     Dosage: 75MG DAILY
     Route: 048
  9. BENAZEPRIL HYDROCHLORIDE [Concomitant]
     Indication: HYPERTENSION
     Dosage: 10MG TWICE DAILY
     Route: 048
  10. BUPROPION HCL [Concomitant]
     Indication: DEPRESSION
     Route: 048

REACTIONS (2)
  - FLUSHING [None]
  - MYOCARDIAL INFARCTION [None]
